FAERS Safety Report 10222858 (Version 1)
Quarter: 2014Q2

REPORT INFORMATION
  Report Type: Spontaneous
  Country: US (occurrence: US)
  Receive Date: 20140607
  Receipt Date: 20140607
  Transmission Date: 20141212
  Serious: Yes (Death)
  Sender: FDA-Public Use
  Company Number: US-ROCHE-1415112

PATIENT
  Age: 71 Year
  Sex: Female

DRUGS (7)
  1. XELODA [Suspect]
     Indication: MALIGNANT NEOPLASM OF ISLETS OF LANGERHANS
     Route: 048
     Dates: start: 20140425
  2. XELODA [Suspect]
     Indication: HEPATIC CANCER
  3. XELODA [Suspect]
     Indication: NEUROENDOCRINE TUMOUR
  4. METFORMIN [Concomitant]
     Route: 065
  5. VITAMIN C [Concomitant]
  6. FERROUS SULFATE [Concomitant]
  7. CRENEZUMAB [Concomitant]
     Route: 065

REACTIONS (1)
  - Death [Fatal]
